FAERS Safety Report 6193394-0 (Version None)
Quarter: 2009Q2

REPORT INFORMATION
  Report Type: 
  Country: None (occurrence: None)
  Receive Date: 20090514
  Receipt Date: 20090514
  Transmission Date: 20091009
  Serious: Yes (Hospitalization)
  Sender: FDA-Public Use
  Company Number: None

PATIENT
  Age: 16 Year
  Sex: Male

DRUGS (2)
  1. ASPIRIN [Suspect]
     Indication: HEADACHE
     Dosage: 325MG PRN PO
     Route: 048
  2. ASPIRIN [Suspect]
     Indication: MALAISE
     Dosage: 325MG PRN PO
     Route: 048

REACTIONS (10)
  - DIZZINESS [None]
  - DUODENITIS [None]
  - GASTRITIS [None]
  - GASTROINTESTINAL HAEMORRHAGE [None]
  - HAEMATOCRIT DECREASED [None]
  - HAEMOGLOBIN DECREASED [None]
  - MALAISE [None]
  - MELAENA [None]
  - ULCER [None]
  - WRONG TECHNIQUE IN DRUG USAGE PROCESS [None]
